FAERS Safety Report 15264549 (Version 2)
Quarter: 2018Q3

REPORT INFORMATION
  Report Type: Report from Study
  Country: TW (occurrence: TW)
  Receive Date: 20180810
  Receipt Date: 20180815
  Transmission Date: 20181010
  Serious: Yes (Hospitalization, Other)
  Sender: FDA-Public Use
  Company Number: TW-BAYER-2018-148342

PATIENT
  Age: 63 Year
  Sex: Female

DRUGS (13)
  1. METHYCOBAL [Concomitant]
     Active Substance: METHYLCOBALAMIN
     Dosage: 200 MG, QD
  2. POTASSIUM GLUCONATE [Concomitant]
     Active Substance: POTASSIUM GLUCONATE
     Dosage: 595 MG, TID
  3. ADEMPAS [Suspect]
     Active Substance: RIOCIGUAT
     Indication: PULMONARY HYPERTENSION
     Dosage: 2 MG, TID
     Dates: start: 20170410
  4. SOFOSBUVIR [Concomitant]
     Active Substance: SOFOSBUVIR
     Dosage: 400 MG, UNK
  5. TRACLEER [Concomitant]
     Active Substance: BOSENTAN
     Dosage: 125 MG, BID
  6. OPSUMIT [Concomitant]
     Active Substance: MACITENTAN
  7. PIRACETAM [Concomitant]
     Active Substance: PIRACETAM
     Dosage: 400 MG, UNK
  8. FLUITRAN [Concomitant]
     Active Substance: TRICHLORMETHIAZIDE
     Dosage: 2 MG, QD
  9. LACTULOSE. [Concomitant]
     Active Substance: LACTULOSE
     Dosage: 15 ML, QD
  10. NEXIUM [Concomitant]
     Active Substance: ESOMEPRAZOLE MAGNESIUM
     Dosage: 40 MG, QD
  11. VENTAVIS [Suspect]
     Active Substance: ILOPROST
     Indication: PULMONARY HYPERTENSION
     Dosage: UNK
     Dates: start: 20140714, end: 20180528
  12. FOLIC ACID. [Concomitant]
     Active Substance: FOLIC ACID
     Dosage: 5 MG, QD
  13. FUROSEMIDE [FUROSEMIDE] [Concomitant]
     Active Substance: FUROSEMIDE
     Dosage: 40 MG, BID

REACTIONS (8)
  - Lip injury [None]
  - Haemoglobin decreased [None]
  - Transfusion [Recovered/Resolved with Sequelae]
  - Haemoglobin decreased [None]
  - Gastrointestinal ulcer [None]
  - Blood potassium decreased [None]
  - Oedema peripheral [None]
  - Muscular weakness [None]

NARRATIVE: CASE EVENT DATE: 20180730
